FAERS Safety Report 10409954 (Version 2)
Quarter: 2014Q4

REPORT INFORMATION
  Report Type: Spontaneous
  Country: JP (occurrence: JP)
  Receive Date: 20140826
  Receipt Date: 20141009
  Transmission Date: 20150528
  Serious: Yes (Other)
  Sender: FDA-Public Use
  Company Number: JP-ASTRAZENECA-2014SE61720

PATIENT

DRUGS (1)
  1. PROPOFOL (NON AZ PRODUCT) [Suspect]
     Active Substance: PROPOFOL
     Dosage: GENERIC
     Route: 042

REACTIONS (1)
  - Rhabdomyolysis [Unknown]
